FAERS Safety Report 9070491 (Version 2)
Quarter: 2013Q3

REPORT INFORMATION
  Report Type: Spontaneous
  Country: GB (occurrence: GB)
  Receive Date: 20130215
  Receipt Date: 20130925
  Transmission Date: 20140515
  Serious: Yes (Other)
  Sender: FDA-Public Use
  Company Number: GB-VERTEX PHARMACEUTICALS INC.-2013-001355

PATIENT
  Age: 42 Year
  Sex: Male
  Weight: 56 kg

DRUGS (7)
  1. INCIVO [Suspect]
     Indication: HEPATITIS C
     Dosage: 750 MG, BID
     Route: 048
     Dates: start: 20120920, end: 20130116
  2. RIBAVIRIN [Suspect]
     Indication: HEPATITIS C
     Dosage: 1000 MG, QD
     Route: 065
     Dates: start: 20120920, end: 20130116
  3. RIBAVIRIN [Suspect]
     Dosage: 200 MG, BID
  4. PEG INTERFERON [Concomitant]
     Indication: HEPATITIS C
     Dosage: DOSAGE FORM: UNSPECIFIED
     Route: 058
     Dates: start: 20120920, end: 20130116
  5. TRUVADA [Concomitant]
     Indication: HIV INFECTION
     Dosage: 1 DF, UNK
     Route: 048
  6. RITONAVIR [Concomitant]
     Indication: HIV INFECTION
     Dosage: 100 MG, QD
  7. CITALOPRAM [Concomitant]
     Indication: DEPRESSION
     Dosage: 20 MG, QD

REACTIONS (3)
  - Syncope [Recovered/Resolved]
  - Anaemia [Unknown]
  - Drug ineffective [Unknown]
